FAERS Safety Report 9780957 (Version 3)
Quarter: 2014Q1

REPORT INFORMATION
  Report Type: Spontaneous
  Country: JP (occurrence: JP)
  Receive Date: 20131224
  Receipt Date: 20140130
  Transmission Date: 20141002
  Serious: Yes (Hospitalization)
  Sender: FDA-Public Use
  Company Number: JP-AMGEN-JPNSP2013089667

PATIENT
  Age: 5 Year
  Sex: Female

DRUGS (4)
  1. ARANESP [Suspect]
     Indication: NEPHROGENIC ANAEMIA
     Dosage: 60 MUG, UNK
     Route: 058
  2. MEDROL                             /00049601/ [Concomitant]
     Dosage: UNK
     Route: 065
  3. CELLCEPT                           /01275102/ [Concomitant]
     Dosage: UNK
     Route: 048
  4. PROGRAF [Concomitant]
     Dosage: UNK
     Route: 065

REACTIONS (1)
  - Aplasia pure red cell [Recovered/Resolved]
